FAERS Safety Report 9595972 (Version 2)
Quarter: 2013Q4

REPORT INFORMATION
  Report Type: Spontaneous
  Country: JP (occurrence: JP)
  Receive Date: 20131004
  Receipt Date: 20131004
  Transmission Date: 20140711
  Serious: Yes (Other)
  Sender: FDA-Public Use
  Company Number: JP-ASTRAZENECA-2013SE65441

PATIENT
  Age: 17029 Day
  Sex: Male
  Weight: 63 kg

DRUGS (4)
  1. XYLOCAINE POLYAMP [Suspect]
     Indication: LOCAL ANAESTHESIA
     Dosage: TWO FOLD DILUTED WITH PHYSIOLOGICAL SALINE
     Route: 058
     Dates: start: 20130805, end: 20130805
  2. XYLOCAINE POLYAMP [Suspect]
     Indication: LOCAL ANAESTHESIA
     Route: 008
     Dates: start: 20130805, end: 20130805
  3. VEEN-F [Concomitant]
     Dosage: DOSE UNKNOWN
     Route: 065
     Dates: start: 20130805, end: 20130805
  4. HEXIZAC [Concomitant]
     Indication: INFECTION PROPHYLAXIS
     Dosage: DOSE UNKNOWN
     Route: 062
     Dates: start: 20130805, end: 20130805

REACTIONS (4)
  - Pruritus [Unknown]
  - Type I hypersensitivity [Recovering/Resolving]
  - Urticaria [Recovering/Resolving]
  - Erythema [Recovering/Resolving]
